FAERS Safety Report 8830474 (Version 2)
Quarter: 2012Q4

REPORT INFORMATION
  Report Type: Report from Study
  Country: JP (occurrence: JP)
  Receive Date: 20121009
  Receipt Date: 20121115
  Transmission Date: 20130627
  Serious: Yes (Death, Hospitalization)
  Sender: FDA-Public Use
  Company Number: JP-ACTELION-A-CH2012-72355

PATIENT
  Age: 52 Year
  Sex: Male
  Weight: 50 kg

DRUGS (13)
  1. TRACLEER [Suspect]
     Indication: PULMONARY ARTERIAL HYPERTENSION
     Dosage: 62.5 mg, bid
     Route: 048
     Dates: start: 20100721, end: 20100909
  2. TRACLEER [Suspect]
     Dosage: 125 mg, bid
     Route: 048
     Dates: start: 20101015, end: 20110311
  3. TRACLEER [Suspect]
     Dosage: 15.63 mg, bid
     Route: 048
     Dates: start: 20100623, end: 20100629
  4. TRACLEER [Suspect]
     Dosage: 31.25 mg, bid
     Route: 048
     Dates: start: 20100630, end: 20100713
  5. TRACLEER [Suspect]
     Dosage: 46.88 mg, bid
     Route: 048
     Dates: start: 20100714, end: 20100720
  6. TRACLEER [Suspect]
     Dosage: 78.13 mg, bid
     Route: 048
     Dates: start: 20100910, end: 20100916
  7. TRACLEER [Suspect]
     Dosage: 93.75 mg, bid
     Route: 048
     Dates: start: 20100917, end: 20101005
  8. TRACLEER [Suspect]
     Dosage: 109.38 mg, bid
     Route: 048
     Dates: start: 20101006, end: 20101014
  9. WARFARIN POTASSIUM [Concomitant]
  10. FUROSEMIDE [Concomitant]
  11. DIGOXIN [Concomitant]
  12. ENALAPRIL MALEATE [Concomitant]
  13. OXYGEN [Concomitant]

REACTIONS (9)
  - Pulmonary arterial hypertension [Fatal]
  - Eisenmenger^s syndrome [Fatal]
  - Ventricular septal defect [Fatal]
  - Cardiac arrest [Fatal]
  - Condition aggravated [Fatal]
  - Dyspnoea [Recovered/Resolved]
  - Fatigue [Recovering/Resolving]
  - Incontinence [Unknown]
  - Fall [Unknown]
